FAERS Safety Report 8597028-7 (Version None)
Quarter: 2012Q3

REPORT INFORMATION
  Report Type: 
  Country: None (occurrence: None)
  Receive Date: 20120816
  Receipt Date: 20120812
  Transmission Date: 20120928
  Serious: Yes (Hospitalization)
  Sender: FDA-Public Use
  Company Number: IL-AMGEN-ISRSP2012050100

PATIENT
  Age: 13 Year
  Sex: Female

DRUGS (3)
  1. PREDNISONE TAB [Concomitant]
     Dosage: UNK
  2. ENBREL [Suspect]
     Indication: JUVENILE ARTHRITIS
     Dosage: 25 MG, UNK LYOPHILIZED
     Dates: start: 20120528
  3. METHOTREXATE [Concomitant]
     Dosage: UNK

REACTIONS (1)
  - ARTHRITIS [None]
